FAERS Safety Report 21984348 (Version 1)
Quarter: 2023Q1

REPORT INFORMATION
  Report Type: Spontaneous
  Country: US (occurrence: None)
  Receive Date: 20230209
  Receipt Date: 20230209
  Transmission Date: 20230418
  Serious: No
  Sender: FDA-Public Use
  Company Number: None

PATIENT
  Age: 76 Year
  Sex: Female
  Weight: 58.7 kg

DRUGS (23)
  1. SIROLIMUS [Suspect]
     Active Substance: SIROLIMUS
     Indication: Transplant
     Dosage: FREQUENCY : DAILY;?
     Route: 048
     Dates: start: 19990707
  2. TACROLIMUS [Suspect]
     Active Substance: TACROLIMUS
     Indication: Transplant
     Dosage: FREQUENCY : TWICE A DAY;?
     Route: 048
     Dates: start: 20210414
  3. PROLIA [Concomitant]
     Active Substance: DENOSUMAB
  4. SPIRONOLACTONE [Concomitant]
  5. METOPROLOL SUCCINATE [Concomitant]
     Active Substance: METOPROLOL SUCCINATE
  6. ASPIRIN EC LOW DOSE [Concomitant]
  7. PROGESTERONE [Concomitant]
  8. ESTROGEL GEL [Concomitant]
  9. FAMOTIDINE [Concomitant]
     Active Substance: FAMOTIDINE
  10. RABEPRAZOLE [Concomitant]
     Active Substance: RABEPRAZOLE
  11. ROSUVASTATIN [Concomitant]
     Active Substance: ROSUVASTATIN
  12. PREDNISONE [Concomitant]
     Active Substance: PREDNISONE
  13. METRONIDAZOLE TOPICAL LOTION [Concomitant]
  14. ZOVIRAX CREAM [Concomitant]
  15. CLINDAMYCIN TOPICAL SOLN [Concomitant]
  16. LORATADINE [Concomitant]
  17. TUMS ULTRA ASST BERRY CHEW [Concomitant]
  18. UBIQUINOL SOFTGELS CAPS [Concomitant]
  19. MAGNESIUM [Concomitant]
     Active Substance: MAGNESIUM
  20. VITAMIN C [Concomitant]
     Active Substance: ASCORBIC ACID
  21. MENAQUINONE 6 [Concomitant]
     Active Substance: MENAQUINONE 6
  22. VITAMIN D3 [Concomitant]
     Active Substance: CHOLECALCIFEROL
  23. ZINC [Concomitant]
     Active Substance: ZINC

REACTIONS (1)
  - Diarrhoea [None]

NARRATIVE: CASE EVENT DATE: 20230206
